FAERS Safety Report 7478457-1 (Version None)
Quarter: 2011Q2

REPORT INFORMATION
  Report Type: 
  Country: None (occurrence: None)
  Receive Date: 20110513
  Receipt Date: 20100716
  Transmission Date: 20111010
  Serious: No
  Sender: FDA-Public Use
  Company Number: US-PFIZER INC-2010089827

PATIENT
  Sex: Female

DRUGS (4)
  1. NAPROSYN [Suspect]
     Dosage: UNK
  2. MOBIC [Suspect]
     Dosage: UNK
  3. CELEBREX [Suspect]
     Dosage: UNK
  4. VIOXX [Suspect]
     Dosage: UNK

REACTIONS (2)
  - PAIN [None]
  - NAUSEA [None]
